FAERS Safety Report 23580662 (Version 1)
Quarter: 2024Q1

REPORT INFORMATION
  Report Type: Report from Study
  Country: EG (occurrence: EG)
  Receive Date: 20240229
  Receipt Date: 20240229
  Transmission Date: 20240410
  Serious: Yes (Other)
  Sender: FDA-Public Use
  Company Number: EG-002147023-NVSC2024EG041496

PATIENT
  Age: 39 Year
  Sex: Female

DRUGS (4)
  1. COSENTYX [Suspect]
     Active Substance: SECUKINUMAB
     Indication: Ankylosing spondylitis
     Dosage: 150 MG, QMO (ONE PREFILLED PEN OF COSENTYX 150 MG EVERY MONTH)
     Route: 058
     Dates: start: 202205, end: 202309
  2. COSENTYX [Suspect]
     Active Substance: SECUKINUMAB
     Dosage: 150 MG (ONE PREFILLED PEN OF COSENTYX 150 MG EVERY MONTH FOR 6 MONTH)
     Route: 058
     Dates: start: 202310
  3. QUETIAPINE [Concomitant]
     Active Substance: QUETIAPINE
     Indication: Depression
     Dosage: UNK, QD (HALF TABLET DAILY, STRENGTH: 25)
     Route: 065
  4. CIPRALEX [Concomitant]
     Active Substance: ESCITALOPRAM OXALATE
     Indication: Depression
     Dosage: UNK, QD (HALF TABLET ONCE DAILY)
     Route: 065
     Dates: start: 202101, end: 202107

REACTIONS (15)
  - White blood cell count decreased [Recovering/Resolving]
  - Decreased immune responsiveness [Recovering/Resolving]
  - Allergic respiratory disease [Recovering/Resolving]
  - Dysphonia [Recovering/Resolving]
  - Stomatitis [Recovering/Resolving]
  - Asthma [Recovering/Resolving]
  - C-reactive protein increased [Recovering/Resolving]
  - Heavy menstrual bleeding [Not Recovered/Not Resolved]
  - Intermenstrual bleeding [Not Recovered/Not Resolved]
  - Urticaria [Recovering/Resolving]
  - Hand-foot-and-mouth disease [Recovered/Resolved]
  - Stomatitis [Recovered/Resolved]
  - Skin ulcer [Recovered/Resolved]
  - Herpes simplex [Recovered/Resolved]
  - Off label use [Unknown]

NARRATIVE: CASE EVENT DATE: 20220501
